FAERS Safety Report 21736138 (Version 3)
Quarter: 2023Q1

REPORT INFORMATION
  Report Type: Report from Study
  Country: ZA (occurrence: ZA)
  Receive Date: 20221215
  Receipt Date: 20230127
  Transmission Date: 20230417
  Serious: Yes (Hospitalization, Other)
  Sender: FDA-Public Use
  Company Number: ZA-GILEAD-2022-0609291

PATIENT
  Age: 33 Year
  Sex: Male

DRUGS (10)
  1. BICTEGRAVIR\EMTRICITABINE\TENOFOVIR ALAFENAMIDE [Suspect]
     Active Substance: BICTEGRAVIR\EMTRICITABINE\TENOFOVIR ALAFENAMIDE
     Indication: HIV infection
     Dosage: 1 DOSAGE FORM, BID
     Route: 048
     Dates: start: 20221107, end: 20221205
  2. PYRIDOXINE [Concomitant]
     Active Substance: PYRIDOXINE
     Dosage: 25 MG, QD
  3. BACTRIM [Concomitant]
     Active Substance: SULFAMETHOXAZOLE\TRIMETHOPRIM
     Dosage: 2 TABS QD
  4. AZITHROMYCIN [Concomitant]
     Active Substance: AZITHROMYCIN
  5. AMOXICILLIN\CLAVULANATE POTASSIUM [Concomitant]
     Active Substance: AMOXICILLIN\CLAVULANATE POTASSIUM
  6. FLUCONAZOLE [Concomitant]
     Active Substance: FLUCONAZOLE
  7. ACYCLOVIR ALPHARMA [ACICLOVIR] [Concomitant]
  8. ACETAMINOPHEN [Concomitant]
     Active Substance: ACETAMINOPHEN
  9. COLCHICINE [Concomitant]
     Active Substance: COLCHICINE
  10. ETHAMBUTOL HYDROCHLORIDE\ISONIAZID\PYRAZINAMIDE\RIFAMYCIN [Concomitant]
     Active Substance: ETHAMBUTOL HYDROCHLORIDE\ISONIAZID\PYRAZINAMIDE\RIFAMYCIN

REACTIONS (2)
  - Pulmonary tuberculosis [Not Recovered/Not Resolved]
  - Dyspnoea [Recovered/Resolved]

NARRATIVE: CASE EVENT DATE: 20221125
